FAERS Safety Report 6199624-3 (Version None)
Quarter: 2009Q2

REPORT INFORMATION
  Report Type: 
  Country: None (occurrence: None)
  Receive Date: 20090522
  Receipt Date: 20080728
  Transmission Date: 20091009
  Serious: No
  Sender: FDA-Public Use
  Company Number: A0739880A

PATIENT
  Age: 3 Year
  Sex: Female

DRUGS (2)
  1. BACTROBAN [Suspect]
     Indication: SKIN INFECTION
     Dosage: 1APP TWICE PER DAY
     Route: 061
     Dates: start: 20080601, end: 20080601
  2. STEROID CREAM [Concomitant]

REACTIONS (3)
  - APPLICATION SITE ERYTHEMA [None]
  - APPLICATION SITE IRRITATION [None]
  - APPLICATION SITE PRURITUS [None]
